FAERS Safety Report 7607846-7 (Version None)
Quarter: 2011Q3

REPORT INFORMATION
  Report Type: 
  Country: None (occurrence: None)
  Receive Date: 20110714
  Receipt Date: 20110706
  Transmission Date: 20111222
  Serious: Yes (Death)
  Sender: FDA-Public Use
  Company Number: US-BIOGENIDEC-2011BI024974

PATIENT
  Age: 59 Year
  Sex: Male

DRUGS (13)
  1. SUBOXONE [Concomitant]
     Indication: PAIN
     Route: 048
     Dates: start: 20040904
  2. PSUEDOPHEDRINE HYDROCHLORIDE [Concomitant]
     Route: 048
     Dates: start: 20090904
  3. NUVIGIL [Concomitant]
     Dates: start: 20090904
  4. BACLOFEN [Concomitant]
     Route: 048
     Dates: start: 20110615
  5. GABAPENTIN [Concomitant]
     Dates: start: 20090904
  6. CETIRIZINE HCL [Concomitant]
     Route: 048
     Dates: start: 20090904
  7. FENTANYL-100 [Concomitant]
     Route: 062
  8. TYSABRI [Suspect]
     Indication: MULTIPLE SCLEROSIS
     Route: 042
     Dates: start: 20080826, end: 20100201
  9. PROVIGIL [Concomitant]
     Route: 048
     Dates: start: 20090904
  10. SEROQUEL [Concomitant]
     Route: 048
     Dates: start: 20090904
  11. METHOCARBAMOL [Concomitant]
     Route: 048
     Dates: start: 20090904
  12. LISINOPRIL [Concomitant]
     Route: 048
     Dates: start: 20090904
  13. SIMVASTATIN [Concomitant]
     Route: 048
     Dates: start: 20090904

REACTIONS (1)
  - DEATH [None]
